FAERS Safety Report 4388152-3 (Version None)
Quarter: 2004Q2

REPORT INFORMATION
  Report Type: 
  Country: None (occurrence: None)
  Receive Date: 20040625
  Receipt Date: 20040609
  Transmission Date: 20050107
  Serious: Yes (Life-Threatening, Hospitalization)
  Sender: FDA-Public Use
  Company Number: EM2004-0252

PATIENT
  Age: 73 Year
  Sex: Male

DRUGS (9)
  1. ALDESLEUKIN; CHIRON(PROLEUKIN; CHIRON CORPORATION) INJECTION [Suspect]
     Indication: LYMPHOMA
     Dosage: 14 MIU , TIW, SUBCUTANEOUS : 10 MIU, TIW , SUBCUTAN.
     Route: 058
     Dates: start: 20040224, end: 20040320
  2. ALDESLEUKIN; CHIRON(PROLEUKIN; CHIRON CORPORATION) INJECTION [Suspect]
     Indication: LYMPHOMA
     Dosage: 14 MIU , TIW, SUBCUTANEOUS : 10 MIU, TIW , SUBCUTAN.
     Route: 058
     Dates: start: 20040321, end: 20040417
  3. RITUXIMAB(RITUXIMAB) [Suspect]
     Indication: LYMPHOMA
     Dosage: 140 MG, QW, IV
     Route: 042
     Dates: start: 20040217, end: 20040309
  4. FOLIC ACID [Concomitant]
  5. VALTREX [Concomitant]
  6. MULTIVITAMIN [Concomitant]
  7. VORICONAZOLE [Concomitant]
  8. VITAMIN C (ASCORBIC ACID) [Concomitant]
  9. LEVOFLOXACIN [Concomitant]

REACTIONS (2)
  - ANGINA PECTORIS [None]
  - HAEMOLYTIC ANAEMIA [None]
